FAERS Safety Report 9747294 (Version 2)
Quarter: 2013Q4

REPORT INFORMATION
  Report Type: Spontaneous
  Country: IN (occurrence: IN)
  Receive Date: 20131212
  Receipt Date: 20131220
  Transmission Date: 20140711
  Serious: Yes (Other)
  Sender: FDA-Public Use
  Company Number: IN-009507513-1312IND004644

PATIENT
  Age: 64 Year
  Sex: Male

DRUGS (3)
  1. JANUMET [Suspect]
     Dosage: 50/500 MG, 1 PER DAY, QD
     Route: 048
     Dates: end: 2013
  2. GLUCORED FORTE [Concomitant]
  3. METROCREAM [Concomitant]

REACTIONS (3)
  - Hemiplegia [Recovered/Resolved]
  - Blood glucose decreased [Recovered/Resolved]
  - Inappropriate schedule of drug administration [Unknown]
